FAERS Safety Report 9506984 (Version 1)
Quarter: 2013Q3

REPORT INFORMATION
  Report Type: Spontaneous
  Country: US (occurrence: US)
  Receive Date: 20130909
  Receipt Date: 20130909
  Transmission Date: 20140515
  Serious: Yes (Hospitalization)
  Sender: FDA-Public Use
  Company Number: US-009507513-1309USA002332

PATIENT
  Sex: 0

DRUGS (6)
  1. INTEGRILIN [Suspect]
     Indication: MYOCARDIAL INFARCTION
     Dosage: 2 MICROGRAM PER KILOGRAM/MIN
     Dates: start: 20130829, end: 20130902
  2. AMIODARONE [Concomitant]
  3. DOPAMINE HYDROCHLORIDE [Concomitant]
  4. NEXIUM [Concomitant]
  5. ZOFRAN [Concomitant]
  6. SOLU-MEDROL [Concomitant]

REACTIONS (2)
  - Haemorrhage [Not Recovered/Not Resolved]
  - Platelet count decreased [Recovering/Resolving]
